FAERS Safety Report 16524985 (Version 6)
Quarter: 2022Q4

REPORT INFORMATION
  Report Type: Report from Study
  Country: JP (occurrence: JP)
  Receive Date: 20190703
  Receipt Date: 20221114
  Transmission Date: 20230113
  Serious: Yes (Other)
  Sender: FDA-Public Use
  Company Number: JP-JNJFOC-20190701533

PATIENT
  Age: 66 Year
  Sex: Female

DRUGS (10)
  1. DARUNAVIR [Suspect]
     Active Substance: DARUNAVIR
     Indication: HIV infection
     Route: 048
     Dates: start: 20130708
  2. NORVIR [Suspect]
     Active Substance: RITONAVIR
     Indication: HIV infection
     Route: 048
     Dates: start: 20090126, end: 20091220
  3. NORVIR [Suspect]
     Active Substance: RITONAVIR
     Indication: HIV infection
     Route: 048
     Dates: start: 20130708
  4. TIVICAY [Suspect]
     Active Substance: DOLUTEGRAVIR SODIUM
     Indication: HIV infection
     Route: 048
     Dates: start: 20141130
  5. ISENTRESS [Concomitant]
     Active Substance: RALTEGRAVIR POTASSIUM
     Indication: HIV infection
     Route: 048
     Dates: start: 20091221, end: 20141129
  6. LORAZEPAM [Concomitant]
     Active Substance: LORAZEPAM
     Indication: Depression
     Route: 048
     Dates: start: 20111012, end: 20180410
  7. SULPIRIDE [Concomitant]
     Active Substance: SULPIRIDE
     Indication: Depression
     Route: 065
     Dates: start: 20091109, end: 20180508
  8. ALENDRONATE SODIUM [Concomitant]
     Active Substance: ALENDRONATE SODIUM
     Indication: Osteoporosis
     Route: 048
     Dates: start: 20130708
  9. ELDECALCITOL [Concomitant]
     Active Substance: ELDECALCITOL
     Indication: Osteoporosis
     Route: 048
     Dates: start: 20130121
  10. LEVOFLOXACIN [Concomitant]
     Active Substance: LEVOFLOXACIN
     Indication: Pneumonia
     Dosage: UNKNOWN
     Route: 065
     Dates: start: 20181204, end: 20181208

REACTIONS (2)
  - Pneumonia [Recovering/Resolving]
  - Hypercholesterolaemia [Not Recovered/Not Resolved]

NARRATIVE: CASE EVENT DATE: 20130826
